FAERS Safety Report 8420353-7 (Version None)
Quarter: 2012Q2

REPORT INFORMATION
  Report Type: 
  Country: None (occurrence: None)
  Receive Date: 20120607
  Receipt Date: 20120530
  Transmission Date: 20120825
  Serious: Yes (Other)
  Sender: FDA-Public Use
  Company Number: US-ABBOTT-12P-163-0923545-00

PATIENT
  Sex: Male
  Weight: 121.22 kg

DRUGS (8)
  1. HUMIRA [Suspect]
     Indication: PSORIASIS
     Route: 058
     Dates: start: 20090808, end: 20090808
  2. ANTIBIOTICS [Concomitant]
     Indication: ABSCESS LIMB
     Dates: start: 20100310, end: 20100320
  3. USTEKINUMAB [Concomitant]
     Indication: PSORIASIS
     Dates: start: 20100710, end: 20110509
  4. ASPIRIN [Concomitant]
     Indication: ANTICOAGULANT THERAPY
     Dates: start: 20070101
  5. CARDIZEM [Concomitant]
     Indication: HYPERTENSION
     Dates: start: 20070101
  6. MULTI-VITAMIN [Concomitant]
     Indication: MEDICAL DIET
     Dates: start: 20070101
  7. HUMIRA [Suspect]
     Route: 058
     Dates: end: 20100410
  8. DIOVAN [Concomitant]
     Indication: HYPERTENSION
     Dates: start: 20070101

REACTIONS (1)
  - EPITHELIOID SARCOMA [None]
